FAERS Safety Report 7241138-3 (Version None)
Quarter: 2011Q1

REPORT INFORMATION
  Report Type: 
  Country: None (occurrence: None)
  Receive Date: 20110119
  Receipt Date: 20110119
  Transmission Date: 20110831
  Serious: Yes (Life-Threatening, Hospitalization, Disabling)
  Sender: FDA-Public Use
  Company Number: None

PATIENT
  Sex: Male
  Weight: 55 kg

DRUGS (14)
  1. ADVAIR DISKUS 100/50 [Concomitant]
  2. PLAQUENIL [Suspect]
     Indication: LUPUS NEPHRITIS
     Dosage: 200 MG TID PO
     Route: 048
     Dates: start: 19950101, end: 20091001
  3. PLAQUENIL [Suspect]
     Indication: RASH
     Dosage: 200 MG TID PO
     Route: 048
     Dates: start: 19950101, end: 20091001
  4. SIMVASTATIN [Concomitant]
  5. TYLENOL-500 [Concomitant]
  6. CALCITRIOL [Concomitant]
  7. ALBUTEROL INHALER [Concomitant]
  8. PREDNISONE [Concomitant]
  9. CALCIUM SUPPLEMENT [Concomitant]
  10. AMLODIPINE [Concomitant]
  11. TEMAZEPAM [Concomitant]
  12. MYCOPHENOLATE MOFETIL [Concomitant]
  13. ASPIRIN [Concomitant]
  14. COLACE [Concomitant]

REACTIONS (17)
  - LUPUS MYOCARDITIS [None]
  - HEPATIC FAILURE [None]
  - VENTRICULAR TACHYCARDIA [None]
  - RENAL FAILURE ACUTE [None]
  - COAGULOPATHY [None]
  - CARDIAC FAILURE [None]
  - TOXICITY TO VARIOUS AGENTS [None]
  - ACIDOSIS [None]
  - CARDIAC DISORDER [None]
  - CARDIAC ARREST [None]
  - IATROGENIC INJURY [None]
  - ISCHAEMIA [None]
  - VENTRICULAR HYPERTROPHY [None]
  - MYOPERICARDITIS [None]
  - CARDIOMYOPATHY [None]
  - HEPATIC ENZYME INCREASED [None]
  - BRADYCARDIA [None]
